FAERS Safety Report 21348740 (Version 1)
Quarter: 2022Q3

REPORT INFORMATION
  Report Type: Report from Study
  Country: US (occurrence: None)
  Receive Date: 20220919
  Receipt Date: 20220919
  Transmission Date: 20221027
  Serious: Yes (Other)
  Sender: FDA-Public Use
  Company Number: US-Eisai Medical Research-EC-2022-123871

PATIENT
  Age: 54 Year
  Sex: Male
  Weight: 119.7 kg

DRUGS (11)
  1. LENVIMA [Suspect]
     Active Substance: LENVATINIB
     Indication: Renal cancer
     Route: 048
     Dates: start: 20220606, end: 20220701
  2. LENVIMA [Suspect]
     Active Substance: LENVATINIB
     Route: 048
     Dates: start: 20220729, end: 2022
  3. EVEROLIMUS [Concomitant]
     Active Substance: EVEROLIMUS
  4. LISINOPRIL [Concomitant]
     Active Substance: LISINOPRIL
  5. VITAMIN D3 [Concomitant]
     Active Substance: CHOLECALCIFEROL
  6. COREG [Concomitant]
     Active Substance: CARVEDILOL
  7. ATROVENT [Concomitant]
     Active Substance: IPRATROPIUM BROMIDE
  8. DRONABINOL [Concomitant]
     Active Substance: DRONABINOL
  9. ELIQUIS [Concomitant]
     Active Substance: APIXABAN
  10. ONDANSETRON [Concomitant]
     Active Substance: ONDANSETRON
  11. OXYCODONE [Concomitant]
     Active Substance: OXYCODONE

REACTIONS (1)
  - Pancreatitis [Recovered/Resolved]

NARRATIVE: CASE EVENT DATE: 20220830
